FAERS Safety Report 9580548 (Version 1)
Quarter: 2013Q4

REPORT INFORMATION
  Report Type: Spontaneous
  Country: US (occurrence: None)
  Receive Date: 20131001
  Receipt Date: 20131001
  Transmission Date: 20140711
  Serious: Yes (Hospitalization)
  Sender: FDA-Public Use
  Company Number: None

PATIENT
  Age: 64 Year
  Sex: Female
  Weight: 104.7 kg

DRUGS (2)
  1. IFOSFAMIDE [Suspect]
  2. PACLITAXEL (TAXOL) [Suspect]

REACTIONS (5)
  - Cellulitis [None]
  - Streptococcal infection [None]
  - Constipation [None]
  - Neutropenia [None]
  - Lymphocyte count decreased [None]
